FAERS Safety Report 25793460 (Version 1)
Quarter: 2025Q3

REPORT INFORMATION
  Report Type: Spontaneous
  Country: US (occurrence: US)
  Receive Date: 20250911
  Receipt Date: 20250911
  Transmission Date: 20251021
  Serious: No
  Sender: BEIGENE
  Company Number: US-BEIGENE-BGN-2025-014503

PATIENT
  Age: 67 Year

DRUGS (1)
  1. BRUKINSA [Suspect]
     Active Substance: ZANUBRUTINIB
     Indication: Product used for unknown indication

REACTIONS (2)
  - Skin odour abnormal [Unknown]
  - Hyperhidrosis [Unknown]
